FAERS Safety Report 6746132-4 (Version None)
Quarter: 2010Q2

REPORT INFORMATION
  Report Type: 
  Country: None (occurrence: None)
  Receive Date: 20100528
  Receipt Date: 20090731
  Transmission Date: 20101027
  Serious: No
  Sender: FDA-Public Use
  Company Number: BR-ASTRAZENECA-2009UW21660

PATIENT
  Age: 48 Year
  Sex: Female

DRUGS (1)
  1. OMEPRAZOLE [Suspect]
     Indication: GASTROOESOPHAGEAL REFLUX DISEASE
     Route: 048
     Dates: start: 20090501, end: 20090727

REACTIONS (3)
  - BURNING SENSATION [None]
  - CONSTIPATION [None]
  - GASTROOESOPHAGEAL REFLUX DISEASE [None]
